FAERS Safety Report 24584963 (Version 1)
Quarter: 2024Q4

REPORT INFORMATION
  Report Type: Spontaneous
  Country: CN (occurrence: CN)
  Receive Date: 20241106
  Receipt Date: 20241106
  Transmission Date: 20250115
  Serious: Yes (Hospitalization)
  Sender: GE HEALTHCARE
  Company Number: CN-GE HEALTHCARE-2024CSU012586

PATIENT
  Age: 65 Year
  Sex: Female
  Weight: 63 kg

DRUGS (2)
  1. OMNIPAQUE [Suspect]
     Active Substance: IOHEXOL
     Indication: Imaging procedure
     Dosage: 17.5 GM, TOTAL
     Route: 050
     Dates: start: 20241026, end: 20241026
  2. SODIUM CHLORIDE [Concomitant]
     Active Substance: SODIUM CHLORIDE
     Indication: Vehicle solution use
     Dosage: 50 ML, TOTAL
     Route: 042
     Dates: start: 20241026, end: 20241026

REACTIONS (4)
  - Blood pressure decreased [Recovered/Resolved]
  - Pyrexia [Recovered/Resolved]
  - Chills [Recovered/Resolved]
  - Temperature intolerance [Recovered/Resolved]

NARRATIVE: CASE EVENT DATE: 20241026
